FAERS Safety Report 5488628-1 (Version None)
Quarter: 2007Q4

REPORT INFORMATION
  Report Type: 
  Country: None (occurrence: None)
  Receive Date: 20071016
  Receipt Date: 20071004
  Transmission Date: 20080405
  Serious: Yes (Hospitalization)
  Sender: FDA-Public Use
  Company Number: 230049M07FRA

PATIENT
  Age: 53 Year
  Sex: Male
  Weight: 76 kg

DRUGS (7)
  1. REBIF [Suspect]
     Indication: RELAPSING-REMITTING MULTIPLE SCLEROSIS
     Dosage: 44 MCG, 3 IN 1 WEEKS, SUBCUTANEOUS
     Route: 058
     Dates: start: 20070510
  2. IMURAN [Concomitant]
  3. PERINDOPRIL ERBUMINE [Concomitant]
  4. ASPIRIN [Concomitant]
  5. PLAVIX [Concomitant]
  6. ROSUVASTATIN CALCIUM [Concomitant]
  7. ACETAMINOPHEN [Concomitant]

REACTIONS (3)
  - ACUTE CORONARY SYNDROME [None]
  - ARTERIOGRAM CORONARY ABNORMAL [None]
  - CORONARY ARTERY OCCLUSION [None]
